FAERS Safety Report 9774925 (Version 1)
Quarter: 2013Q4

REPORT INFORMATION
  Report Type: Spontaneous
  Country: GB (occurrence: GB)
  Receive Date: 20131220
  Receipt Date: 20131220
  Transmission Date: 20140711
  Serious: Yes (Other)
  Sender: FDA-Public Use
  Company Number: GB-009507513-1312GBR009224

PATIENT
  Age: 60 Year
  Sex: Female
  Weight: 41.7 kg

DRUGS (7)
  1. ALENDRONATE SODIUM [Suspect]
     Indication: OSTEOPOROSIS
     Dosage: 70 MG, QW
     Route: 048
     Dates: start: 1998, end: 201304
  2. CALCEOS [Concomitant]
  3. FERROUS SULFATE [Concomitant]
  4. GLUCOSAMINE [Concomitant]
  5. RED CLOVER [Concomitant]
  6. TEMAZEPAM [Concomitant]
  7. ASCORBIC ACID [Suspect]

REACTIONS (3)
  - Oral disorder [Not Recovered/Not Resolved]
  - Pain [Not Recovered/Not Resolved]
  - Osteonecrosis of jaw [Not Recovered/Not Resolved]
